FAERS Safety Report 14038567 (Version 1)
Quarter: 2017Q4

REPORT INFORMATION
  Report Type: Spontaneous
  Country: US (occurrence: US)
  Receive Date: 20171004
  Receipt Date: 20171004
  Transmission Date: 20180321
  Serious: No
  Sender: FDA-Public Use
  Company Number: DE-ASTRAZENECA-2017SF00620

PATIENT
  Sex: Male

DRUGS (4)
  1. LUNESTA [Suspect]
     Active Substance: ESZOPICLONE
     Indication: SLEEP DISORDER
     Dosage: 2.0MG UNKNOWN
  2. EYLEA [Suspect]
     Active Substance: AFLIBERCEPT
     Indication: NEOVASCULAR AGE-RELATED MACULAR DEGENERATION
     Dosage: UNK, LAST DOSE, LEFT EYE
     Route: 031
     Dates: start: 20170908, end: 20170908
  3. OMEPRAZOLE. [Suspect]
     Active Substance: OMEPRAZOLE
     Indication: ULCER
     Route: 048
  4. EYLEA [Suspect]
     Active Substance: AFLIBERCEPT
     Indication: NEOVASCULAR AGE-RELATED MACULAR DEGENERATION
     Dosage: UNK, LEFT EYE
     Route: 031
     Dates: start: 2014

REACTIONS (4)
  - Visual acuity reduced [Unknown]
  - Vision blurred [Unknown]
  - Ulcer [Recovering/Resolving]
  - Vitreous floaters [Unknown]

NARRATIVE: CASE EVENT DATE: 20170908
